FAERS Safety Report 8940307 (Version 2)
Quarter: 2012Q4

REPORT INFORMATION
  Report Type: 
  Country: US (occurrence: US)
  Receive Date: 20121121
  Receipt Date: 20121212
  Transmission Date: 20130627
  Serious: No
  Sender: FDA-Public Use
  Company Number: US-ASTELLAS-1108415

PATIENT
  Sex: Male

DRUGS (4)
  1. TARCEVA [Suspect]
     Indication: METASTATIC SQUAMOUS CELL CARCINOMA
     Route: 048
     Dates: start: 200501, end: 20050203
  2. TARCEVA [Suspect]
     Indication: MALIGNANT RESPIRATORY TRACT NEOPLASM
     Route: 048
     Dates: start: 200502, end: 20050512
  3. CYCLOSPORIN [Concomitant]
  4. AMOXICILLIN [Concomitant]

REACTIONS (3)
  - Disease progression [Unknown]
  - Gastrointestinal disorder [Unknown]
  - Cyst [Recovered/Resolved]
